FAERS Safety Report 4786768-3 (Version None)
Quarter: 2005Q4

REPORT INFORMATION
  Report Type: 
  Country: None (occurrence: None)
  Receive Date: 20051004
  Receipt Date: 20050928
  Transmission Date: 20060501
  Serious: Yes (Other)
  Sender: FDA-Public Use
  Company Number: BR-BRISTOL-MYERS SQUIBB COMPANY-13129648

PATIENT
  Age: 67 Year
  Sex: Female
  Weight: 50 kg

DRUGS (1)
  1. MITOCIN [Suspect]
     Indication: IMPETIGO
     Route: 042

REACTIONS (1)
  - CONJUNCTIVAL DEGENERATION [None]
